FAERS Safety Report 6945865 (Version 12)
Quarter: 2012Q4

REPORT INFORMATION
  Report Type: 
  Country: CA (occurrence: CA)
  Receive Date: 20090319
  Receipt Date: 20121109
  Transmission Date: 20130627
  Serious: Yes (Hospitalization, Other)
  Sender: FDA-Public Use
  Company Number: PHHY2009CA09626

PATIENT
  Sex: Female

DRUGS (1)
  1. SANDOSTATIN LAR [Suspect]
     Indication: CARCINOID TUMOUR
     Dosage: 30 mg every 4 weeks
     Route: 030
     Dates: start: 20081218

REACTIONS (18)
  - Blood pressure increased [Recovering/Resolving]
  - Body temperature decreased [Recovering/Resolving]
  - Fall [Recovering/Resolving]
  - Anaemia [Unknown]
  - Haemoglobin decreased [Recovering/Resolving]
  - Localised intraabdominal fluid collection [Unknown]
  - Abdominal mass [Unknown]
  - Sinusitis [Unknown]
  - Chest pain [Unknown]
  - Terminal state [Unknown]
  - Decreased appetite [Unknown]
  - Hepatic neoplasm [Unknown]
  - Abdominal neoplasm [Unknown]
  - Abdominal pain [Unknown]
  - Diarrhoea [Recovering/Resolving]
  - Dehydration [Recovering/Resolving]
  - Malaise [Unknown]
  - Injection site pain [Unknown]
